FAERS Safety Report 4816651-6 (Version None)
Quarter: 2005Q4

REPORT INFORMATION
  Report Type: 
  Country: None (occurrence: None)
  Receive Date: 20051028
  Receipt Date: 20051021
  Transmission Date: 20060501
  Serious: Yes (Death, Hospitalization)
  Sender: FDA-Public Use
  Company Number: 163-20785-04070027

PATIENT
  Age: 57 Year
  Sex: Male

DRUGS (1)
  1. THALOMID [Suspect]
     Dosage: 150-200MG, QHS, ORAL
     Route: 048
     Dates: start: 20040318, end: 20040601

REACTIONS (2)
  - BRAIN NEOPLASM MALIGNANT [None]
  - DISEASE PROGRESSION [None]
